FAERS Safety Report 4721668-6 (Version None)
Quarter: 2005Q3

REPORT INFORMATION
  Report Type: 
  Country: None (occurrence: None)
  Receive Date: 20050721
  Receipt Date: 20050208
  Transmission Date: 20060218
  Serious: Yes (Hospitalization)
  Sender: FDA-Public Use
  Company Number: US-BRISTOL-MYERS SQUIBB COMPANY-12861217

PATIENT
  Age: 9 Decade
  Sex: Male

DRUGS (2)
  1. COUMADIN [Suspect]
  2. NAMENDA [Suspect]
     Indication: DEMENTIA ALZHEIMER'S TYPE
     Dosage: DOSAGE FROM OCT-2004 TO 00-2004 WAS ORAL 5 MG DAILY
     Route: 048
     Dates: start: 20041001, end: 20050101

REACTIONS (2)
  - HAEMORRHAGIC STROKE [None]
  - INTERNATIONAL NORMALISED RATIO INCREASED [None]
